APPROVED DRUG PRODUCT: PROPRANOLOL HYDROCHLORIDE
Active Ingredient: PROPRANOLOL HYDROCHLORIDE
Strength: 20MG
Dosage Form/Route: TABLET;ORAL
Application: A078213 | Product #002
Applicant: NORTHSTAR HEALTHCARE HOLDINGS LTD
Approved: Jan 10, 2008 | RLD: No | RS: No | Type: DISCN